FAERS Safety Report 19026825 (Version 1)
Quarter: 2021Q1

REPORT INFORMATION
  Report Type: Report from Study
  Country: TR (occurrence: TR)
  Receive Date: 20210318
  Receipt Date: 20210318
  Transmission Date: 20210420
  Serious: Yes (Death)
  Sender: FDA-Public Use
  Company Number: TR-BIOGEN-2021BI00988774

PATIENT

DRUGS (1)
  1. SPINRAZA [Suspect]
     Active Substance: NUSINERSEN
     Indication: PRODUCT USED FOR UNKNOWN INDICATION
     Dosage: SPINRAZA 2.4 MG/ML INTRATEKAL ENJEKSIYON I?IN ??ZELTI I?EREN FLAKON
     Route: 037

REACTIONS (1)
  - Pneumothorax [Fatal]
